FAERS Safety Report 8238973-1 (Version None)
Quarter: 2012Q1

REPORT INFORMATION
  Report Type: 
  Country: None (occurrence: None)
  Receive Date: 20120327
  Receipt Date: 20120321
  Transmission Date: 20120608
  Serious: Yes (Hospitalization, Other)
  Sender: FDA-Public Use
  Company Number: PHHY2011CA30196

PATIENT
  Sex: Male

DRUGS (14)
  1. ZOLEDRONOC ACID [Suspect]
     Dosage: 5 MG, UNK
     Route: 042
     Dates: start: 20100428
  2. PREVACID [Concomitant]
  3. LASIX [Concomitant]
     Dosage: 40 MG, DAILY
  4. ZOLEDRONOC ACID [Suspect]
     Dosage: 5 MG, UNK
     Route: 042
     Dates: start: 20110329
  5. ZOLEDRONOC ACID [Suspect]
     Dosage: 5 MG, UNK
     Route: 042
     Dates: start: 20090421
  6. SYNTHROID [Concomitant]
     Dosage: 150 UG, DAILY
  7. ADEKS [Concomitant]
  8. ZOLEDRONOC ACID [Suspect]
     Indication: OSTEOPOROSIS
     Dosage: 5 MG, UNK
     Route: 042
     Dates: start: 20080421
  9. MORPHINE [Concomitant]
     Dosage: IN THE FORM OF CONTIN AND RAPID RELEASE (HIGH DOSAGE)
  10. VITAMIN D [Concomitant]
     Dosage: 1200 IU PER DAY
  11. CALCIUM CARBONATE [Concomitant]
     Dosage: 1.5 G, QD
  12. TESTOSTERONE ENANTATE [Concomitant]
     Dosage: 100 MG, BIW
  13. COTAZYM [Concomitant]
  14. SULCRATE [Concomitant]

REACTIONS (15)
  - INFECTION [None]
  - HAEMOGLOBIN DECREASED [None]
  - MALNUTRITION [None]
  - LUNG NEOPLASM MALIGNANT [None]
  - UNDERWEIGHT [None]
  - WEIGHT FLUCTUATION [None]
  - LIMB INJURY [None]
  - OEDEMA [None]
  - ABDOMINAL PAIN [None]
  - JOINT SWELLING [None]
  - FOOT FRACTURE [None]
  - BLOOD ALBUMIN DECREASED [None]
  - INAPPROPRIATE SCHEDULE OF DRUG ADMINISTRATION [None]
  - APHASIA [None]
  - MALABSORPTION [None]
